FAERS Safety Report 9263607 (Version 2)
Quarter: 2013Q2

REPORT INFORMATION
  Report Type: Report from Study
  Country: US (occurrence: US)
  Receive Date: 20130430
  Receipt Date: 20130502
  Transmission Date: 20140414
  Serious: Yes (Other)
  Sender: FDA-Public Use
  Company Number: US-PFIZER INC-2011196639

PATIENT
  Age: 59 Year
  Sex: Male
  Weight: 93.4 kg

DRUGS (7)
  1. LYRICA [Suspect]
     Indication: NEUROPATHY PERIPHERAL
     Dosage: 100 MG, 3X/DAY
     Route: 048
  2. LYRICA [Suspect]
     Indication: DIABETIC NEUROPATHY
  3. LYRICA [Suspect]
     Indication: HYPOAESTHESIA
  4. COREG [Concomitant]
     Indication: MYOCARDIAL INFARCTION
     Dosage: 25 MG, 2X/DAY
  5. ALPRAZOLAM [Concomitant]
     Dosage: 1 MG, UNK
  6. ZOFRAN [Concomitant]
     Indication: NAUSEA
     Dosage: UNK
  7. ONDANSETRON [Concomitant]
     Indication: NAUSEA
     Dosage: UNK

REACTIONS (3)
  - Back disorder [Unknown]
  - Paraesthesia [Unknown]
  - Drug ineffective [Unknown]
